FAERS Safety Report 11589536 (Version 1)
Quarter: 2015Q4

REPORT INFORMATION
  Report Type: Spontaneous
  Country: US (occurrence: US)
  Receive Date: 20151002
  Receipt Date: 20151002
  Transmission Date: 20160304
  Serious: No
  Sender: FDA-Public Use
  Company Number: US-JNJFOC-20150909996

PATIENT
  Sex: Male
  Weight: 74.84 kg

DRUGS (3)
  1. ADVIL [Concomitant]
     Active Substance: IBUPROFEN
     Indication: HEADACHE
     Route: 065
  2. CONCERTA [Suspect]
     Active Substance: METHYLPHENIDATE HYDROCHLORIDE
     Indication: PRODUCT USED FOR UNKNOWN INDICATION
     Route: 048
  3. ADVIL [Concomitant]
     Active Substance: IBUPROFEN
     Indication: MUSCLE STRAIN
     Route: 065

REACTIONS (9)
  - Social problem [Not Recovered/Not Resolved]
  - Lethargy [Not Recovered/Not Resolved]
  - Hypervigilance [Not Recovered/Not Resolved]
  - Drug dose omission [Unknown]
  - Abnormal behaviour [Not Recovered/Not Resolved]
  - Drug effect decreased [Unknown]
  - Inappropriate schedule of drug administration [Unknown]
  - Disturbance in social behaviour [Unknown]
  - Nonspecific reaction [Unknown]
